FAERS Safety Report 7595902-1 (Version None)
Quarter: 2011Q3

REPORT INFORMATION
  Report Type: 
  Country: None (occurrence: None)
  Receive Date: 20110707
  Receipt Date: 20110627
  Transmission Date: 20111222
  Serious: Yes (Hospitalization)
  Sender: FDA-Public Use
  Company Number: JP-JNJFOC-20110410415

PATIENT
  Age: 64 Year
  Sex: Male
  Weight: 70 kg

DRUGS (7)
  1. REMICADE [Suspect]
     Dosage: 2 INFUSIONS ON KNOWN DATES
     Route: 042
     Dates: start: 20100908
  2. REMICADE [Suspect]
     Dosage: 2 INFUSIONS ON KNOWN DATES
     Route: 042
     Dates: start: 20100811
  3. REMICADE [Suspect]
     Indication: PSORIATIC ARTHROPATHY
     Route: 042
     Dates: start: 20101105
  4. PYDOXAL [Concomitant]
     Indication: PROPHYLAXIS
     Dosage: STARTED ON AN UKNOWN DATE PRIOR TO THE START OF INFLIXIMAB
     Route: 048
     Dates: end: 20101220
  5. ISONIAZID [Concomitant]
     Indication: ANTIBIOTIC PROPHYLAXIS
     Route: 065
     Dates: start: 20100604, end: 20101220
  6. REMICADE [Suspect]
     Dosage: 1ST DOSE
     Route: 042
     Dates: start: 20100728
  7. REMICADE [Suspect]
     Dosage: 5TH DOSE
     Route: 042
     Dates: start: 20101217

REACTIONS (1)
  - GASTRIC CANCER [None]
